FAERS Safety Report 7314837-2 (Version None)
Quarter: 2011Q1

REPORT INFORMATION
  Report Type: 
  Country: None (occurrence: None)
  Receive Date: 20110225
  Receipt Date: 20110103
  Transmission Date: 20110831
  Serious: No
  Sender: FDA-Public Use
  Company Number: US-MYLANLABS-2011S1000100

PATIENT
  Age: 21 Year
  Sex: Female

DRUGS (2)
  1. AMNESTEEM [Suspect]
     Indication: ACNE
     Route: 048
     Dates: start: 20100727, end: 20101201
  2. AMNESTEEM [Suspect]
     Route: 048
     Dates: end: 20101201

REACTIONS (3)
  - HEADACHE [None]
  - EYE SWELLING [None]
  - DRY EYE [None]
